FAERS Safety Report 7768509-0 (Version None)
Quarter: 2011Q3

REPORT INFORMATION
  Report Type: 
  Country: None (occurrence: None)
  Receive Date: 20110922
  Receipt Date: 20110412
  Transmission Date: 20111222
  Serious: Yes (Other)
  Sender: FDA-Public Use
  Company Number: US-ASTRAZENECA-2011SE21026

PATIENT
  Age: 25 Year
  Sex: Male
  Weight: 90.7 kg

DRUGS (4)
  1. SEROQUEL XR [Suspect]
     Indication: BIPOLAR DISORDER
     Dosage: DAILY
     Route: 048
     Dates: start: 20100101, end: 20100101
  2. SEROQUEL XR [Suspect]
     Route: 048
     Dates: start: 20100101, end: 20110101
  3. TYLENOL-500 [Concomitant]
     Route: 048
     Dates: start: 20100101, end: 20100101
  4. LITHIUM CARBONATE [Concomitant]
     Indication: BIPOLAR DISORDER
     Route: 048
     Dates: start: 20110101

REACTIONS (6)
  - CONVULSION [None]
  - FEAR [None]
  - SUICIDE ATTEMPT [None]
  - ANTISOCIAL BEHAVIOUR [None]
  - DEPRESSION [None]
  - ANGER [None]
